FAERS Safety Report 12651077 (Version 3)
Quarter: 2016Q3

REPORT INFORMATION
  Report Type: Report from Study
  Country: US (occurrence: US)
  Receive Date: 20160815
  Receipt Date: 20160921
  Transmission Date: 20161109
  Serious: Yes (Disabling)
  Sender: FDA-Public Use
  Company Number: US-BIOGEN-2016BI00277306

PATIENT
  Sex: Female

DRUGS (2)
  1. TYSABRI [Suspect]
     Active Substance: NATALIZUMAB
     Indication: MULTIPLE SCLEROSIS
     Route: 042
     Dates: start: 20150206, end: 201608
  2. TYSABRI [Suspect]
     Active Substance: NATALIZUMAB
     Route: 042
     Dates: end: 20160726

REACTIONS (3)
  - General physical health deterioration [Unknown]
  - Multiple sclerosis [Not Recovered/Not Resolved]
  - Drug ineffective [Unknown]
